FAERS Safety Report 22629757 (Version 1)
Quarter: 2023Q2

REPORT INFORMATION
  Report Type: Spontaneous
  Country: AU (occurrence: AU)
  Receive Date: 20230622
  Receipt Date: 20230622
  Transmission Date: 20230722
  Serious: No
  Sender: FDA-Public Use
  Company Number: AU-PHARMAMAR-2023PM000396

PATIENT

DRUGS (4)
  1. ZEPZELCA [Suspect]
     Active Substance: LURBINECTEDIN
     Indication: Small cell lung cancer metastatic
     Dosage: 3.2 MILLIGRAM/SQ. METER, C1
     Route: 042
     Dates: start: 20230330, end: 20230330
  2. ZEPZELCA [Suspect]
     Active Substance: LURBINECTEDIN
     Dosage: 3.2 MILLIGRAM/SQ. METER, C2
     Route: 042
     Dates: start: 20230420, end: 20230420
  3. DEXAMETHASONE [Concomitant]
     Active Substance: DEXAMETHASONE
     Indication: Premedication
     Dosage: 8 MILLIGRAM
     Route: 042
     Dates: start: 20230420, end: 20230420
  4. ONDANSETRON [Concomitant]
     Active Substance: ONDANSETRON
     Indication: Premedication
     Dosage: 8 MILLIGRAM
     Route: 042
     Dates: start: 20230420, end: 20230420

REACTIONS (1)
  - Fatigue [Unknown]
